FAERS Safety Report 24987896 (Version 3)
Quarter: 2025Q3

REPORT INFORMATION
  Report Type: Report from Study
  Country: US (occurrence: US)
  Receive Date: 20250219
  Receipt Date: 20250711
  Transmission Date: 20251020
  Serious: Yes (Hospitalization, Other)
  Sender: ABBVIE
  Company Number: US-ABBVIE-6090532

PATIENT
  Age: 79 Year
  Sex: Female
  Weight: 49.441 kg

DRUGS (7)
  1. HUMIRA [Suspect]
     Active Substance: ADALIMUMAB
     Indication: Crohn^s disease
     Dosage: CITRATE FREE?FORM STRENGTH :40 MG
     Route: 058
     Dates: start: 202503
  2. HUMIRA [Suspect]
     Active Substance: ADALIMUMAB
     Dosage: CITRATE FREE?FORM STRENGTH: 40 MG
     Route: 058
     Dates: start: 20240513, end: 202502
  3. LEXAPRO [Concomitant]
     Active Substance: ESCITALOPRAM OXALATE
     Indication: Anxiety
     Route: 048
     Dates: start: 20241216
  4. CURCUMIN [Concomitant]
     Active Substance: CURCUMIN
     Indication: Routine health maintenance
     Route: 048
     Dates: start: 20231215
  5. VITAMIN B12 [Concomitant]
     Active Substance: CYANOCOBALAMIN
     Indication: Vitamin B12 deficiency
     Route: 060
  6. CALCIUM\VITAMIN D [Concomitant]
     Active Substance: CALCIUM\VITAMIN D
     Indication: Osteoporosis
     Route: 048
  7. METOPROLOL TARTRATE [Concomitant]
     Active Substance: METOPROLOL TARTRATE
     Indication: Supraventricular tachycardia

REACTIONS (6)
  - Atrial fibrillation [Recovering/Resolving]
  - Influenza like illness [Recovered/Resolved]
  - Atrial fibrillation [Recovering/Resolving]
  - Influenza [Recovered/Resolved]
  - Feeling abnormal [Recovering/Resolving]
  - Gastrointestinal inflammation [Recovering/Resolving]

NARRATIVE: CASE EVENT DATE: 20250111
